FAERS Safety Report 4309026-X (Version None)
Quarter: 2004Q1

REPORT INFORMATION
  Report Type: 
  Country: None (occurrence: None)
  Receive Date: 20040301
  Receipt Date: 20040209
  Transmission Date: 20041129
  Serious: Yes (Other)
  Sender: FDA-Public Use
  Company Number: 2004-BP-01471BP

PATIENT
  Age: 29 Year
  Sex: Female

DRUGS (2)
  1. VIRAMUNE [Suspect]
     Indication: HIV INFECTION
     Dosage: 400 MG (NR), PO
     Route: 048
     Dates: start: 19991207
  2. LAMIVUDINE (NR) [Suspect]
     Indication: HIV INFECTION
     Dosage: 300 MG (NR), PO
     Route: 048
     Dates: start: 19991108

REACTIONS (4)
  - ABORTION INDUCED [None]
  - COMPLICATIONS OF MATERNAL EXPOSURE TO THERAPEUTIC DRUGS [None]
  - MATERNAL DRUGS AFFECTING FOETUS [None]
  - PREGNANCY [None]
